FAERS Safety Report 6169012-4 (Version None)
Quarter: 2009Q2

REPORT INFORMATION
  Report Type: 
  Country: None (occurrence: None)
  Receive Date: 20090427
  Receipt Date: 20090420
  Transmission Date: 20091009
  Serious: Yes (Other)
  Sender: FDA-Public Use
  Company Number: US-PFIZER INC-2009185460

PATIENT
  Age: 27 Year
  Sex: Female

DRUGS (3)
  1. LYRICA [Suspect]
     Indication: SLEEP DISORDER
     Dosage: 75 MG, UNK
  2. BUPRENORPHINE HYDROCHLORIDE/NALOXONE HYDROCHLORIDE [Concomitant]
     Indication: DRUG DEPENDENCE
     Dosage: UNK
  3. ZOLOFT [Concomitant]
     Dosage: UNK

REACTIONS (2)
  - CONVULSION [None]
  - INTENTIONAL DRUG MISUSE [None]
